FAERS Safety Report 9078940 (Version 1)
Quarter: 2013Q1

REPORT INFORMATION
  Report Type: Report from Study
  Country: US (occurrence: US)
  Receive Date: 20130130
  Receipt Date: 20130130
  Transmission Date: 20140127
  Serious: No
  Sender: FDA-Public Use
  Company Number: US-ABBOTT-12P-163-0974039-00

PATIENT
  Age: 48 Year
  Sex: Male

DRUGS (2)
  1. HUMIRA [Suspect]
     Indication: PSORIATIC ARTHROPATHY
     Dates: start: 20120613
  2. CELEXA [Concomitant]
     Indication: ANXIETY

REACTIONS (5)
  - Wrong technique in drug usage process [Not Recovered/Not Resolved]
  - Drug administered at inappropriate site [Not Recovered/Not Resolved]
  - Incorrect dose administered [Not Recovered/Not Resolved]
  - Musculoskeletal stiffness [Not Recovered/Not Resolved]
  - Paraesthesia [Not Recovered/Not Resolved]
